FAERS Safety Report 24919743 (Version 1)
Quarter: 2025Q1

REPORT INFORMATION
  Report Type: Spontaneous
  Country: FR (occurrence: FR)
  Receive Date: 20250204
  Receipt Date: 20250204
  Transmission Date: 20250408
  Serious: No
  Sender: EXELIXIS
  Company Number: FR-BRISTOL-MYERS SQUIBB COMPANY-2023-183396

PATIENT
  Age: 83 Year
  Sex: Male

DRUGS (2)
  1. CABOMETYX [Suspect]
     Active Substance: CABOZANTINIB S-MALATE
     Indication: Renal disorder
     Route: 065
  2. NIVOLUMAB [Suspect]
     Active Substance: NIVOLUMAB
     Indication: Renal disorder
     Route: 065

REACTIONS (16)
  - Myalgia [Recovered/Resolved]
  - Gastrooesophageal reflux disease [Unknown]
  - Rash maculo-papular [Not Recovered/Not Resolved]
  - Dry skin [Unknown]
  - Dizziness [Recovered/Resolved]
  - Pruritus [Unknown]
  - Fatigue [Recovered/Resolved]
  - Palmar-plantar erythrodysaesthesia syndrome [Unknown]
  - Headache [Unknown]
  - Stomatitis [Not Recovered/Not Resolved]
  - Dyspnoea [Not Recovered/Not Resolved]
  - Weight decreased [Recovered/Resolved]
  - Cough [Unknown]
  - Diarrhoea [Recovered/Resolved]
  - Decreased appetite [Not Recovered/Not Resolved]
  - Dysgeusia [Unknown]
